FAERS Safety Report 4432323-4 (Version None)
Quarter: 2004Q3

REPORT INFORMATION
  Report Type: 
  Country: None (occurrence: None)
  Receive Date: 20040820
  Receipt Date: 20040806
  Transmission Date: 20050211
  Serious: Yes (Hospitalization)
  Sender: FDA-Public Use
  Company Number: 04P-087-0268112-00

PATIENT
  Age: 44 Year
  Sex: Female

DRUGS (4)
  1. EURODIN (PROSOM) (ESTALOZAM) (ESTAZOLAM) [Suspect]
     Indication: INSOMNIA
     Dosage: 1 MG, 1 IN1 D, PER ORAL
     Route: 048
     Dates: start: 20010101, end: 20040706
  2. PAROXETINE HYDROCHLORIDE [Suspect]
     Indication: INSOMNIA
     Dosage: 30 MG, 1 IN 1 D, PER ORAL
     Route: 048
     Dates: start: 20010101, end: 20040706
  3. FLUNITRAZEPAM [Suspect]
     Indication: INSOMNIA
     Dosage: 2 MG, 1 IN 1 D, PER ORAL
     Route: 048
     Dates: start: 20010101, end: 20040706
  4. ZOLPIDEM TARTRATE [Suspect]
     Indication: INSOMNIA
     Dosage: 10 MG, 1 IN 1 D, PER ORAL
     Route: 048
     Dates: start: 20010101, end: 20040706

REACTIONS (7)
  - ASTHENIA [None]
  - DIARRHOEA [None]
  - HEPATITIS ACUTE [None]
  - LIVER DISORDER [None]
  - MARKEDLY REDUCED DIETARY INTAKE [None]
  - NAUSEA [None]
  - VOMITING [None]
